FAERS Safety Report 13459522 (Version 1)
Quarter: 2017Q2

REPORT INFORMATION
  Report Type: Spontaneous
  Country: US (occurrence: US)
  Receive Date: 20170419
  Receipt Date: 20170419
  Transmission Date: 20170830
  Serious: Yes (Hospitalization)
  Sender: FDA-Public Use
  Company Number: US-BEH-2017079611

PATIENT
  Sex: Female
  Weight: 95.24 kg

DRUGS (25)
  1. CIPRO [Concomitant]
     Active Substance: CIPROFLOXACIN HYDROCHLORIDE
  2. FUROSEMIDE. [Concomitant]
     Active Substance: FUROSEMIDE
  3. LASIX [Concomitant]
     Active Substance: FUROSEMIDE
  4. ALPRAZOLAM. [Concomitant]
     Active Substance: ALPRAZOLAM
  5. ZEMAIRA [Suspect]
     Active Substance: .ALPHA.1-PROTEINASE INHIBITOR HUMAN
     Dosage: UNK
     Route: 042
  6. DIPHENHYDRAMINE. [Concomitant]
     Active Substance: DIPHENHYDRAMINE
  7. METOPROLOL TARTRATE. [Concomitant]
     Active Substance: METOPROLOL TARTRATE
  8. ZEMAIRA [Suspect]
     Active Substance: .ALPHA.1-PROTEINASE INHIBITOR HUMAN
     Indication: ALPHA-1 ANTI-TRYPSIN DEFICIENCY
     Dosage: 60 MG/KG, QW
     Route: 042
     Dates: start: 20090514
  9. STERILE WATER [Concomitant]
     Active Substance: WATER
  10. LOSARTAN. [Concomitant]
     Active Substance: LOSARTAN
  11. VENTOLIN [Concomitant]
     Active Substance: ALBUTEROL SULFATE
  12. EPIPEN [Concomitant]
     Active Substance: EPINEPHRINE
  13. DULERA [Concomitant]
     Active Substance: FORMOTEROL FUMARATE DIHYDRATE\MOMETASONE FUROATE
  14. OXYGEN. [Concomitant]
     Active Substance: OXYGEN
  15. LEVAQUIN [Concomitant]
     Active Substance: LEVOFLOXACIN
  16. HYDROCHLOROTHIAZIDE. [Concomitant]
     Active Substance: HYDROCHLOROTHIAZIDE
  17. ALBUTEROL                          /00139501/ [Concomitant]
     Active Substance: ALBUTEROL
  18. SODIUM CHLORIDE. [Concomitant]
     Active Substance: SODIUM CHLORIDE
  19. POTASSIUM CHLORIDE. [Concomitant]
     Active Substance: POTASSIUM CHLORIDE
  20. PREDNISONE. [Concomitant]
     Active Substance: PREDNISONE
  21. FLUTICASONE. [Concomitant]
     Active Substance: FLUTICASONE
  22. MUCINEX [Concomitant]
     Active Substance: GUAIFENESIN
  23. ADVAIR HFA [Concomitant]
     Active Substance: FLUTICASONE PROPIONATE\SALMETEROL XINAFOATE
  24. LMX                                /00033401/ [Concomitant]
  25. SPIRIVA [Concomitant]
     Active Substance: TIOTROPIUM BROMIDE MONOHYDRATE

REACTIONS (3)
  - Cough [Unknown]
  - Salmonellosis [Unknown]
  - Dyspnoea [Unknown]
